FAERS Safety Report 8518586-4 (Version None)
Quarter: 2012Q3

REPORT INFORMATION
  Report Type: 
  Country: None (occurrence: None)
  Receive Date: 20120718
  Receipt Date: 19991207
  Transmission Date: 20120928
  Serious: No
  Sender: FDA-Public Use
  Company Number: 1999COU0732

PATIENT
  Age: 79 Year
  Sex: Male
  Weight: 68 kg

DRUGS (11)
  1. ATENOLOL [Concomitant]
     Dosage: 75 MG AES#DOSE_FREQUENCY: QD
  2. LESCOL [Concomitant]
     Dosage: 20 MG AES#DOSE_FREQUENCY: QD
  3. COUMADIN [Suspect]
     Indication: ATRIAL FIBRILLATION
     Dosage: 0-6.0 MG DLY
     Route: 048
     Dates: start: 19980821, end: 19990526
  4. CLONIDINE [Concomitant]
     Dosage: AES#DOSE_SP_01: 3 PATCHES/WK
  5. ZESTRIL [Concomitant]
     Dosage: UNK-10 MG BID
  6. FLECAINIDE ACETATE [Suspect]
     Indication: PALPITATIONS
  7. NITROGLYCERIN [Concomitant]
     Dosage: 0.4 MG AES#DOSE_FREQUENCY: QD
  8. CATAPRES [Concomitant]
  9. PROCARDIA XL [Concomitant]
     Dosage: 30-60 MG BID
  10. FUROSEMIDE [Concomitant]
     Dosage: 80 MG AES#DOSE_FREQUENCY: BID
  11. ISORDIL [Concomitant]
     Dosage: 20 MG AES#DOSE_FREQUENCY: QD

REACTIONS (4)
  - PROTHROMBIN TIME ABNORMAL [None]
  - PALPITATIONS [None]
  - BLUE TOE SYNDROME [None]
  - MALAISE [None]
